FAERS Safety Report 8273322-4 (Version None)
Quarter: 2012Q2

REPORT INFORMATION
  Report Type: 
  Country: None (occurrence: None)
  Receive Date: 20120411
  Receipt Date: 20120404
  Transmission Date: 20120825
  Serious: Yes (Other)
  Sender: FDA-Public Use
  Company Number: PHHY2009AU11941

PATIENT
  Sex: Female

DRUGS (6)
  1. ZOLEDRONOC ACID [Suspect]
     Dosage: 5 MG, UNK
     Route: 042
     Dates: start: 20100615
  2. SPIRIVA [Concomitant]
     Dosage: 18 MG, UNK
  3. FLUTICASONE PROPIONATE/SALMETEROL [Concomitant]
  4. VENTOLIN [Concomitant]
     Dosage: 100 MG, UNK
  5. NUCLIN [Concomitant]
  6. ZOLEDRONOC ACID [Suspect]
     Indication: OSTEOPOROSIS
     Dosage: 5 MG, UNK
     Route: 042
     Dates: start: 20090331

REACTIONS (7)
  - PALPITATIONS [None]
  - HYPERTENSION [None]
  - SYNCOPE [None]
  - MALAISE [None]
  - CHEST DISCOMFORT [None]
  - ANXIETY [None]
  - BLOOD PRESSURE INCREASED [None]
